FAERS Safety Report 19722445 (Version 1)
Quarter: 2021Q3

REPORT INFORMATION
  Report Type: Spontaneous
  Country: US (occurrence: US)
  Receive Date: 20210819
  Receipt Date: 20210819
  Transmission Date: 20211014
  Serious: No
  Sender: FDA-Public Use
  Company Number: US-ALFASIGMA USA, INC.-2020US005838

PATIENT

DRUGS (2)
  1. ZELNORM [Suspect]
     Active Substance: TEGASEROD MALEATE
     Indication: IRRITABLE BOWEL SYNDROME
     Dosage: 6 MG
     Route: 048
     Dates: start: 20200924, end: 202010
  2. EMGALITY [Concomitant]
     Active Substance: GALCANEZUMAB-GNLM
     Indication: MIGRAINE
     Dosage: UNK, MONTHLY

REACTIONS (3)
  - Drug ineffective [Recovering/Resolving]
  - Asthenia [Recovering/Resolving]
  - Off label use [Recovering/Resolving]

NARRATIVE: CASE EVENT DATE: 20200927
